FAERS Safety Report 5324095-6 (Version None)
Quarter: 2007Q2

REPORT INFORMATION
  Report Type: 
  Country: None (occurrence: None)
  Receive Date: 20070514
  Receipt Date: 20060412
  Transmission Date: 20071010
  Serious: No
  Sender: FDA-Public Use
  Company Number: A0601599A

PATIENT
  Age: 34 Year
  Sex: Female

DRUGS (5)
  1. NABUMETONE [Suspect]
     Dosage: 500MG TWICE PER DAY
     Route: 048
     Dates: start: 20051101
  2. PLAQUENIL [Concomitant]
  3. ZYRTEC [Concomitant]
  4. TAGAMET [Concomitant]
  5. RELAFEN [Concomitant]
     Route: 048
     Dates: start: 20050501, end: 20051101

REACTIONS (1)
  - VERTIGO [None]
